FAERS Safety Report 6488114-6 (Version None)
Quarter: 2009Q4

REPORT INFORMATION
  Report Type: 
  Country: None (occurrence: None)
  Receive Date: 20091210
  Receipt Date: 20091130
  Transmission Date: 20100525
  Serious: Yes (Hospitalization)
  Sender: FDA-Public Use
  Company Number: A0834392A

PATIENT
  Sex: Female

DRUGS (2)
  1. NICORETTE [Suspect]
     Indication: SMOKING CESSATION THERAPY
     Route: 002
     Dates: start: 19950101
  2. ASTHMA MEDICATION [Concomitant]

REACTIONS (8)
  - ASTHENIA [None]
  - EXERCISE TOLERANCE DECREASED [None]
  - FULL BLOOD COUNT DECREASED [None]
  - GASTRIC ULCER HAEMORRHAGE [None]
  - GENERAL PHYSICAL HEALTH DETERIORATION [None]
  - INTENTIONAL DRUG MISUSE [None]
  - PALLOR [None]
  - POOR QUALITY SLEEP [None]
